FAERS Safety Report 9595491 (Version 1)
Quarter: 2013Q3

REPORT INFORMATION
  Report Type: Spontaneous
  Country: US (occurrence: None)
  Receive Date: 20130927
  Receipt Date: 20130927
  Transmission Date: 20140515
  Serious: Yes (Death, Hospitalization)
  Sender: FDA-Public Use
  Company Number: CABO-13002984

PATIENT
  Age: 71 Year
  Sex: Male

DRUGS (7)
  1. COMETRIQ [Suspect]
     Indication: THYROID CANCER
     Route: 048
     Dates: start: 20130627, end: 20130703
  2. DAYPRO (OXAPROZIN) [Concomitant]
  3. PLAVIX (CLOPIDOGREL BISULFATE) [Concomitant]
  4. OMEPRAZOLE (OMEPRAZOLE) [Concomitant]
  5. SYNTHROID (LEVOTHYROXINE SODIUM) [Concomitant]
  6. TAMSULOSIN (TAMSULOSIN) [Concomitant]
  7. MULTIVITAMIN (VITAMINS NOS) [Concomitant]

REACTIONS (5)
  - Sepsis [None]
  - Wound infection [None]
  - Pain in extremity [None]
  - Blood urine present [None]
  - Diarrhoea [None]
